FAERS Safety Report 5395540-5 (Version None)
Quarter: 2007Q3

REPORT INFORMATION
  Report Type: 
  Country: None (occurrence: None)
  Receive Date: 20070724
  Receipt Date: 20070723
  Transmission Date: 20080115
  Serious: Yes (Death, Hospitalization)
  Sender: FDA-Public Use
  Company Number: US-BRISTOL-MYERS SQUIBB COMPANY-13798673

PATIENT
  Age: 78 Year
  Sex: Male

DRUGS (13)
  1. COUMADIN [Suspect]
     Indication: DEEP VEIN THROMBOSIS
     Route: 048
     Dates: end: 20070322
  2. COUMADIN [Suspect]
     Indication: ATRIAL FIBRILLATION
     Route: 048
     Dates: end: 20070322
  3. REVLIMID [Suspect]
     Indication: MULTIPLE MYELOMA
     Dosage: TEMPORIARLY STOPPED 01-MAR-07 RESTARTED 12-MAR-07.
     Route: 048
     Dates: start: 20070216, end: 20070322
  4. DILTIAZEM HCL [Concomitant]
  5. NORTRIPTYLINE HCL [Concomitant]
  6. FUROSEMIDE [Concomitant]
  7. ASPIRIN [Concomitant]
  8. MS CONTIN [Concomitant]
  9. HYDROCHLOROTHIAZIDE [Concomitant]
  10. DIGOXIN [Concomitant]
  11. CENTRUM SILVER [Concomitant]
  12. COLACE [Concomitant]
  13. OXYCODONE HCL [Concomitant]

REACTIONS (12)
  - CARDIAC ARREST [None]
  - DEHYDRATION [None]
  - EPISTAXIS [None]
  - GASTROINTESTINAL HAEMORRHAGE [None]
  - HAEMORRHOIDAL HAEMORRHAGE [None]
  - INTERSTITIAL LUNG DISEASE [None]
  - MALIGNANT NEOPLASM PROGRESSION [None]
  - METABOLIC ACIDOSIS [None]
  - PROTHROMBIN TIME PROLONGED [None]
  - RENAL FAILURE ACUTE [None]
  - RENAL TUBULAR NECROSIS [None]
  - RESPIRATORY DISTRESS [None]
